FAERS Safety Report 17094841 (Version 1)
Quarter: 2019Q4

REPORT INFORMATION
  Report Type: Spontaneous
  Country: US (occurrence: US)
  Receive Date: 20191130
  Receipt Date: 20191130
  Transmission Date: 20200122
  Serious: No
  Sender: FDA-Public Use
  Company Number: NVSC2019US024380

PATIENT
  Sex: Male

DRUGS (1)
  1. LAMISIL [Suspect]
     Active Substance: TERBINAFINE HYDROCHLORIDE
     Indication: PRODUCT USED FOR UNKNOWN INDICATION
     Dosage: UNK
     Route: 065
     Dates: start: 20191018, end: 20191022

REACTIONS (6)
  - Application site erythema [Recovered/Resolved]
  - Application site swelling [Not Recovered/Not Resolved]
  - Application site vesicles [Recovered/Resolved]
  - Accidental exposure to product [Unknown]
  - Product complaint [Unknown]
  - Genital discolouration [Unknown]
